FAERS Safety Report 25624145 (Version 3)
Quarter: 2025Q3

REPORT INFORMATION
  Report Type: Spontaneous
  Country: US (occurrence: US)
  Receive Date: 20250730
  Receipt Date: 20250808
  Transmission Date: 20251021
  Serious: No
  Sender: SANOFI AVENTIS
  Company Number: US-SA-2025SA221102

PATIENT
  Sex: Male

DRUGS (1)
  1. DUPIXENT [Suspect]
     Active Substance: DUPILUMAB
     Indication: Eczema
     Dosage: 300 MG, QOW
     Route: 058
     Dates: start: 202407

REACTIONS (5)
  - Pruritus [Recovered/Resolved]
  - Therapeutic response shortened [Unknown]
  - Injection site bruising [Unknown]
  - Injection site pain [Unknown]
  - Product preparation error [Unknown]
